FAERS Safety Report 4342437-5 (Version None)
Quarter: 2004Q1

REPORT INFORMATION
  Report Type: 
  Country: None (occurrence: None)
  Receive Date: 20040213
  Receipt Date: 20031031
  Transmission Date: 20041129
  Serious: Yes (Hospitalization)
  Sender: FDA-Public Use
  Company Number: 339406

PATIENT
  Age: 45 Year
  Sex: Female
  Weight: 47.6 kg

DRUGS (6)
  1. PEGASYS [Suspect]
     Indication: HEPATITIS C
     Dosage: 150 MCG 1 PER WEEK SUBCUTANEOUS
     Route: 058
     Dates: start: 20030523, end: 20000904
  2. COPEGUS [Suspect]
     Indication: HEPATITIS C
     Dosage: 600 MG DAILY 2 PER DAY ORAL
     Route: 048
     Dates: start: 20030523, end: 20030904
  3. DYAZIDE [Concomitant]
  4. AMBIEN [Concomitant]
  5. VALIUM [Concomitant]
  6. MORPHINE [Concomitant]

REACTIONS (26)
  - ABDOMINAL PAIN [None]
  - ALOPECIA [None]
  - ANOREXIA [None]
  - BLOOD PRESSURE DECREASED [None]
  - BURNING SENSATION [None]
  - DERMATITIS [None]
  - DYSKINESIA [None]
  - EYE DISORDER [None]
  - FAECES DISCOLOURED [None]
  - FATIGUE [None]
  - GASTROOESOPHAGEAL REFLUX DISEASE [None]
  - HAEMATOLOGY TEST ABNORMAL [None]
  - HAEMOPTYSIS [None]
  - INJECTION SITE ERYTHEMA [None]
  - INJECTION SITE HAEMORRHAGE [None]
  - INJECTION SITE SWELLING [None]
  - LOCALISED OEDEMA [None]
  - LOSS OF CONSCIOUSNESS [None]
  - MUCOSAL INFLAMMATION [None]
  - MUSCLE TWITCHING [None]
  - RASH [None]
  - SKIN ULCER [None]
  - SWELLING FACE [None]
  - SWOLLEN TONGUE [None]
  - SYNCOPE [None]
  - WEIGHT DECREASED [None]
